FAERS Safety Report 10188118 (Version 1)
Quarter: 2014Q2

REPORT INFORMATION
  Report Type: Spontaneous
  Country: US (occurrence: US)
  Receive Date: 20140522
  Receipt Date: 20140522
  Transmission Date: 20141212
  Serious: No
  Sender: FDA-Public Use
  Company Number: US-SA-2013SA100524

PATIENT
  Age: 75 Year
  Sex: Male

DRUGS (1)
  1. LANTUS [Suspect]
     Dosage: TAKEN FROM: 10 YEARS DOSE:50 UNIT(S)
     Route: 065

REACTIONS (1)
  - Skin burning sensation [Unknown]
